FAERS Safety Report 9051849 (Version 1)
Quarter: 2013Q1

REPORT INFORMATION
  Report Type: Spontaneous
  Country: US (occurrence: US)
  Receive Date: 20130207
  Receipt Date: 20130207
  Transmission Date: 20140127
  Serious: Yes (Hospitalization)
  Sender: FDA-Public Use
  Company Number: US-BAYER-2013-015142

PATIENT
  Age: 43 Year
  Sex: Female
  Weight: 60.32 kg

DRUGS (1)
  1. OCELLA [Suspect]

REACTIONS (1)
  - Pulmonary embolism [None]
